FAERS Safety Report 23753465 (Version 2)
Quarter: 2024Q2

REPORT INFORMATION
  Report Type: Spontaneous
  Country: SK (occurrence: SK)
  Receive Date: 20240417
  Receipt Date: 20240514
  Transmission Date: 20240716
  Serious: Yes (Hospitalization)
  Sender: FDA-Public Use
  Company Number: SK-SA-2024SA110292

PATIENT
  Age: 60 Year
  Sex: Female

DRUGS (11)
  1. CAPLACIZUMAB [Suspect]
     Active Substance: CAPLACIZUMAB
     Indication: Thrombotic thrombocytopenic purpura
     Dosage: 10 MG, QD ((FIRST DOSE GIVEN BY INTRAVENOUS INJECTION)
     Route: 042
     Dates: start: 20221209, end: 20221210
  2. CAPLACIZUMAB [Suspect]
     Active Substance: CAPLACIZUMAB
     Indication: Thrombotic thrombocytopenic purpura
     Dosage: 10 MG, QD ((FIRST DOSE GIVEN BY INTRAVENOUS INJECTION)
     Route: 042
     Dates: start: 20221209, end: 20221210
  3. CAPLACIZUMAB [Suspect]
     Active Substance: CAPLACIZUMAB
     Indication: Thrombotic thrombocytopenic purpura
     Dosage: 10 MG, QD ((FIRST DOSE GIVEN BY INTRAVENOUS INJECTION)
     Route: 042
     Dates: start: 20221209, end: 20221210
  4. CAPLACIZUMAB [Suspect]
     Active Substance: CAPLACIZUMAB
     Indication: Thrombotic thrombocytopenic purpura
     Dosage: 10 MG, QD ((FIRST DOSE GIVEN BY INTRAVENOUS INJECTION)
     Route: 042
     Dates: start: 20221209, end: 20221210
  5. CAPLACIZUMAB [Suspect]
     Active Substance: CAPLACIZUMAB
     Dosage: 10 MG, QD
     Route: 058
     Dates: start: 20221210, end: 202212
  6. CAPLACIZUMAB [Suspect]
     Active Substance: CAPLACIZUMAB
     Dosage: 10 MG, QD
     Route: 058
     Dates: start: 20221210, end: 202212
  7. CAPLACIZUMAB [Suspect]
     Active Substance: CAPLACIZUMAB
     Dosage: 10 MG, QD
     Route: 058
     Dates: start: 20221210, end: 202212
  8. CAPLACIZUMAB [Suspect]
     Active Substance: CAPLACIZUMAB
     Dosage: 10 MG, QD
     Route: 058
     Dates: start: 20221210, end: 202212
  9. CORTICOSTEROID NOS [Concomitant]
     Active Substance: CORTICOSTEROID NOS
     Indication: Thrombotic thrombocytopenic purpura
     Dosage: UNK (HIGH DOSE)
     Dates: start: 202212
  10. CORTICOSTEROID NOS [Concomitant]
     Active Substance: CORTICOSTEROID NOS
     Dosage: UNK (TAPERING)
     Dates: start: 202212
  11. ENOXAPARIN SODIUM [Concomitant]
     Active Substance: ENOXAPARIN SODIUM
     Indication: Thrombosis prophylaxis
     Dosage: 0.8 ML
     Route: 058
     Dates: start: 20221215, end: 20221221

REACTIONS (3)
  - Catheter site haematoma [Unknown]
  - Epistaxis [Unknown]
  - Haemorrhage [Unknown]

NARRATIVE: CASE EVENT DATE: 20221201
